FAERS Safety Report 8000845 (Version 4)
Quarter: 2015Q2

REPORT INFORMATION
  Report Type: Spontaneous
  Country: US (occurrence: US)
  Receive Date: 20110621
  Receipt Date: 20150403
  Transmission Date: 20150821
  Serious: Yes (Hospitalization, Other)
  Sender: FDA-Public Use
  Company Number: US-ASTRAZENECA-2011SE05347

PATIENT
  Age: 85 Year
  Sex: Female
  Weight: 52.2 kg

DRUGS (32)
  1. LIPITOR [Suspect]
     Active Substance: ATORVASTATIN CALCIUM
     Indication: BLOOD CHOLESTEROL INCREASED
     Route: 048
     Dates: start: 1985
  2. LIPITOR [Suspect]
     Active Substance: ATORVASTATIN CALCIUM
     Indication: BLOOD PRESSURE ABNORMAL
     Route: 048
     Dates: start: 1985
  3. PULMICORT FLEXHALER [Suspect]
     Active Substance: BUDESONIDE
     Indication: ASTHMA
     Dosage: 180 MCG, 1 PUFF BID
     Route: 055
     Dates: start: 201002, end: 201002
  4. PULMICORT FLEXHALER [Suspect]
     Active Substance: BUDESONIDE
     Indication: ASTHMA
     Dosage: 180 MCG, 1 PUFF DAILY
     Route: 055
     Dates: start: 2008, end: 201206
  5. PULMICORT FLEXHALER [Suspect]
     Active Substance: BUDESONIDE
     Indication: ASTHMA
     Dosage: 180 MCG,2 PUFFS TWO TIMES A DAY
     Route: 055
     Dates: start: 201307, end: 20130813
  6. PULMICORT FLEXHALER [Suspect]
     Active Substance: BUDESONIDE
     Indication: RESPIRATORY DISORDER
     Dosage: 180 MCG, 1 PUFF DAILY
     Route: 055
     Dates: start: 200706
  7. NORVASC [Concomitant]
     Active Substance: AMLODIPINE BESYLATE
     Indication: HYPERTENSION
     Route: 048
  8. PULMICORT FLEXHALER [Suspect]
     Active Substance: BUDESONIDE
     Indication: RESPIRATORY DISORDER
     Dosage: 180 MCG, 1 PUFF DAILY
     Route: 055
     Dates: start: 201002
  9. PULMICORT FLEXHALER [Suspect]
     Active Substance: BUDESONIDE
     Indication: ASTHMA
     Dosage: 180 MCG, 1 PUFF DAILY
     Route: 055
     Dates: start: 201002
  10. PULMICORT FLEXHALER [Suspect]
     Active Substance: BUDESONIDE
     Indication: ASTHMA
     Dosage: 180 MCG, 1 PUFF DAILY
     Route: 055
     Dates: start: 201002
  11. PULMICORT FLEXHALER [Suspect]
     Active Substance: BUDESONIDE
     Indication: ASTHMA
     Dosage: 180 MCG,1 PUFF TWO TIMES A DAY
     Route: 055
     Dates: start: 20130813
  12. HYDROCODONE [Suspect]
     Active Substance: HYDROCODONE
     Indication: PAIN
     Route: 065
     Dates: start: 2008
  13. PULMICORT FLEXHALER [Suspect]
     Active Substance: BUDESONIDE
     Indication: ASTHMA
     Dosage: 180 MCG, 1 PUFF BID
     Route: 055
     Dates: start: 201002, end: 201002
  14. PULMICORT FLEXHALER [Suspect]
     Active Substance: BUDESONIDE
     Indication: ASTHMA
     Dosage: 180 MCG,1 PUFF TWO TIMES A DAY
     Route: 055
     Dates: start: 20130813
  15. PULMICORT FLEXHALER [Suspect]
     Active Substance: BUDESONIDE
     Indication: RESPIRATORY DISORDER
     Dosage: 180 MCG, ONE PUFF IN AM ONE PUFF IN THE PM
     Route: 055
     Dates: start: 2013
  16. LISINOPRIL. [Suspect]
     Active Substance: LISINOPRIL
     Indication: HYPERTENSION
     Route: 048
  17. MAGNESIUM OXIDE. [Concomitant]
     Active Substance: MAGNESIUM OXIDE
     Indication: HEART RATE ABNORMAL
     Route: 048
     Dates: start: 200908
  18. SYNTHROID [Concomitant]
     Active Substance: LEVOTHYROXINE SODIUM
     Indication: THYROID DISORDER
  19. PULMICORT FLEXHALER [Suspect]
     Active Substance: BUDESONIDE
     Indication: ASTHMA
     Dosage: 180 MCG, 1 PUFF DAILY
     Route: 055
     Dates: start: 200706
  20. PULMICORT FLEXHALER [Suspect]
     Active Substance: BUDESONIDE
     Indication: RESPIRATORY DISORDER
     Dosage: 180 MCG, 1 PUFF BID
     Route: 055
     Dates: start: 201002, end: 201002
  21. PULMICORT FLEXHALER [Suspect]
     Active Substance: BUDESONIDE
     Indication: RESPIRATORY DISORDER
     Dosage: 180 MCG, 1 PUFF DAILY
     Route: 055
     Dates: start: 2008, end: 201206
  22. PULMICORT FLEXHALER [Suspect]
     Active Substance: BUDESONIDE
     Indication: RESPIRATORY DISORDER
     Dosage: 180 MCG,2 PUFFS TWO TIMES A DAY
     Route: 055
     Dates: start: 201307, end: 20130813
  23. LISINOPRIL. [Suspect]
     Active Substance: LISINOPRIL
     Indication: HYPERTENSION
     Route: 048
     Dates: start: 2011
  24. ASA [Concomitant]
     Active Substance: ASPIRIN
     Indication: ANTIPLATELET THERAPY
     Route: 048
     Dates: start: 2002
  25. CLORCON [Concomitant]
     Indication: MINERAL SUPPLEMENTATION
     Route: 048
  26. PULMICORT FLEXHALER [Suspect]
     Active Substance: BUDESONIDE
     Indication: ASTHMA
     Dosage: 180 MCG, 1 PUFF DAILY
     Route: 055
     Dates: start: 200706
  27. PULMICORT FLEXHALER [Suspect]
     Active Substance: BUDESONIDE
     Indication: ASTHMA
     Dosage: 180 MCG, 1 PUFF DAILY
     Route: 055
     Dates: start: 2008, end: 201206
  28. PULMICORT FLEXHALER [Suspect]
     Active Substance: BUDESONIDE
     Indication: ASTHMA
     Dosage: 180 MCG,2 PUFFS TWO TIMES A DAY
     Route: 055
     Dates: start: 201307, end: 20130813
  29. PULMICORT FLEXHALER [Suspect]
     Active Substance: BUDESONIDE
     Indication: RESPIRATORY DISORDER
     Dosage: 180 MCG,1 PUFF TWO TIMES A DAY
     Route: 055
     Dates: start: 20130813
  30. PULMICORT FLEXHALER [Suspect]
     Active Substance: BUDESONIDE
     Indication: ASTHMA
     Dosage: 180 MCG, ONE PUFF IN AM ONE PUFF IN THE PM
     Route: 055
     Dates: start: 2013
  31. PULMICORT FLEXHALER [Suspect]
     Active Substance: BUDESONIDE
     Indication: ASTHMA
     Dosage: 180 MCG, ONE PUFF IN AM ONE PUFF IN THE PM
     Route: 055
     Dates: start: 2013
  32. PLAVIX [Concomitant]
     Active Substance: CLOPIDOGREL BISULFATE
     Route: 048
     Dates: start: 2005, end: 201201

REACTIONS (23)
  - Tongue pruritus [Unknown]
  - Oedema [Not Recovered/Not Resolved]
  - Blood potassium decreased [Recovered/Resolved]
  - Electrolyte imbalance [Unknown]
  - Muscle strain [Unknown]
  - Nausea [Recovered/Resolved]
  - Choking [Unknown]
  - Fall [Recovered/Resolved]
  - Adverse event [Recovered/Resolved]
  - Tooth fracture [Recovered/Resolved]
  - Influenza [Recovered/Resolved]
  - Cardiac disorder [Recovered/Resolved]
  - Diarrhoea [Unknown]
  - Spinal column stenosis [Unknown]
  - Head injury [Recovered/Resolved]
  - Asthenia [Unknown]
  - Gastroenteritis viral [Recovered/Resolved]
  - Vomiting [Unknown]
  - Bronchitis [Recovered/Resolved]
  - Pain in extremity [Recovered/Resolved]
  - Asthma [Recovered/Resolved]
  - Syncope [Unknown]
  - Swollen tongue [Unknown]

NARRATIVE: CASE EVENT DATE: 200802
